FAERS Safety Report 5805248-7 (Version None)
Quarter: 2008Q3

REPORT INFORMATION
  Report Type: 
  Country: None (occurrence: None)
  Receive Date: 20080703
  Receipt Date: 20070213
  Transmission Date: 20090109
  Serious: Yes (Hospitalization, Other)
  Sender: FDA-Public Use
  Company Number: US019256

PATIENT
  Age: 41 Year
  Sex: Male

DRUGS (13)
  1. FENTORA [Suspect]
     Indication: BACK PAIN
     Dosage: 800 UG QD BUCCAL
     Route: 002
  2. FENTORA [Suspect]
     Indication: SURGICAL FAILURE
     Dosage: 800 UG QD BUCCAL
     Route: 002
  3. FENTORA [Suspect]
     Indication: BACK PAIN
     Dosage: 800 UG QD BUCCAL
     Route: 002
     Dates: start: 20070101
  4. FENTORA [Suspect]
     Indication: SURGICAL FAILURE
     Dosage: 800 UG QD BUCCAL
     Route: 002
     Dates: start: 20070101
  5. CYMBALTA [Suspect]
     Dosage: ORAL
     Route: 048
  6. AMITRIPTYLINE HCL [Concomitant]
  7. FENTANYL [Concomitant]
  8. FLEXERIL [Concomitant]
  9. OXYCODONE HCL [Concomitant]
  10. VIAGRA [Concomitant]
  11. OPANA [Concomitant]
  12. AMBIEN [Concomitant]
  13. NEURONTIN [Concomitant]

REACTIONS (5)
  - CONFUSIONAL STATE [None]
  - DELIRIUM [None]
  - DRUG WITHDRAWAL SYNDROME [None]
  - INCOHERENT [None]
  - SEROTONIN SYNDROME [None]
